FAERS Safety Report 7229595-X (Version None)
Quarter: 2011Q1

REPORT INFORMATION
  Report Type: 
  Country: None (occurrence: None)
  Receive Date: 20110117
  Receipt Date: 20101105
  Transmission Date: 20110831
  Serious: No
  Sender: FDA-Public Use
  Company Number: US-TYCO HEALTHCARE/MALLINCKRODT-T201002232

PATIENT
  Sex: Male

DRUGS (2)
  1. MEDROL [Concomitant]
     Indication: PREMEDICATION
     Dosage: UNK
     Dates: start: 20101104, end: 20101105
  2. OPTIRAY 350 [Suspect]
     Indication: COMPUTERISED TOMOGRAM
     Dosage: 75 ML, SINGLE
     Route: 042
     Dates: start: 20101105, end: 20101105

REACTIONS (4)
  - SNEEZING [None]
  - CHEST DISCOMFORT [None]
  - URTICARIA [None]
  - PRURITUS [None]
